FAERS Safety Report 6566091-7 (Version None)
Quarter: 2010Q1

REPORT INFORMATION
  Report Type: 
  Country: None (occurrence: None)
  Receive Date: 20100202
  Receipt Date: 20100125
  Transmission Date: 20100710
  Serious: Yes (Hospitalization)
  Sender: FDA-Public Use
  Company Number: DE-BAYER-200940883GPV

PATIENT
  Age: 45 Year
  Sex: Female
  Weight: 78 kg

DRUGS (1)
  1. MIRENA [Suspect]
     Indication: CONTRACEPTION
     Route: 015
     Dates: start: 20030401, end: 20080101

REACTIONS (9)
  - ANXIETY DISORDER [None]
  - CHEST DISCOMFORT [None]
  - DEPRESSION [None]
  - DIZZINESS [None]
  - MUSCULAR WEAKNESS [None]
  - NAUSEA [None]
  - PALPITATIONS [None]
  - PANIC ATTACK [None]
  - SUICIDAL IDEATION [None]
